FAERS Safety Report 15088546 (Version 2)
Quarter: 2018Q3

REPORT INFORMATION
  Report Type: Spontaneous
  Country: NL (occurrence: NL)
  Receive Date: 20180629
  Receipt Date: 20180805
  Transmission Date: 20181010
  Serious: Yes (Hospitalization, Other)
  Sender: FDA-Public Use
  Company Number: NL-CONCORDIA PHARMACEUTICALS INC.-E2B_00013182

PATIENT
  Age: 66 Year
  Sex: Female

DRUGS (3)
  1. TRANYLCYPROMINE [Suspect]
     Active Substance: TRANYLCYPROMINE
     Dosage: LAST YEAR ONE DAY 20MG, OTHER DAY 40MG ALTERNATELY
  2. TRANYLCYPROMINE [Suspect]
     Active Substance: TRANYLCYPROMINE
     Dosage: LAST YEAR ONE DAY 20MG, OTHER DAY 40MG ALTERNATELY
  3. TRANYLCYPROMINE [Suspect]
     Active Substance: TRANYLCYPROMINE
     Dosage: USING TRANYLCYPROMINE SINCE 10 YEARS

REACTIONS (11)
  - Headache [Unknown]
  - Blood pressure increased [Unknown]
  - Fatigue [Unknown]
  - Apraxia [Not Recovered/Not Resolved]
  - Limb discomfort [Unknown]
  - Cognitive disorder [Not Recovered/Not Resolved]
  - Malaise [Unknown]
  - Hypertensive crisis [Unknown]
  - Nausea [Unknown]
  - Hypertension [Unknown]
  - Restlessness [Unknown]

NARRATIVE: CASE EVENT DATE: 201804
